FAERS Safety Report 7900754 (Version 3)
Quarter: 2012Q4

REPORT INFORMATION
  Report Type: Report from Study
  Country: DE (occurrence: DE)
  Receive Date: 20110415
  Receipt Date: 20120925
  Transmission Date: 20130627
  Serious: Yes (Death, Other)
  Sender: FDA-Public Use
  Company Number: PHHY2011DE30818

PATIENT
  Age: 66 Year
  Sex: Female
  Weight: 55 kg

DRUGS (3)
  1. ZOLEDRONATE [Suspect]
     Indication: BONE DISORDER
     Dosage: 4 mg, every 4 weeks
     Route: 042
     Dates: start: 20090915, end: 20110210
  2. LETROZOLE [Concomitant]
     Dates: start: 20090909
  3. FASLODEX [Concomitant]
     Dates: start: 20100517

REACTIONS (6)
  - Organ failure [Fatal]
  - Neoplasm progression [Unknown]
  - Malignant neoplasm progression [Unknown]
  - Metastases to liver [Unknown]
  - Cholelithiasis [Unknown]
  - Renal cyst [Unknown]
